APPROVED DRUG PRODUCT: ACYCLOVIR SODIUM
Active Ingredient: ACYCLOVIR SODIUM
Strength: EQ 50MG BASE/ML
Dosage Form/Route: INJECTABLE;INJECTION
Application: A206535 | Product #001 | TE Code: AP
Applicant: ZYDUS PHARMACEUTICALS USA INC
Approved: Aug 31, 2018 | RLD: No | RS: No | Type: RX